FAERS Safety Report 4297431-X (Version None)
Quarter: 2004Q1

REPORT INFORMATION
  Report Type: 
  Country: None (occurrence: None)
  Receive Date: 20040218
  Receipt Date: 20040210
  Transmission Date: 20041129
  Serious: Yes (Other)
  Sender: FDA-Public Use
  Company Number: PHEH2004US01770

PATIENT
  Age: 68 Year
  Sex: Male

DRUGS (4)
  1. EXELON [Suspect]
     Indication: MEMORY IMPAIRMENT
     Dosage: 3 MG, QD
     Route: 048
     Dates: start: 20020101
  2. EXELON [Suspect]
     Dosage: 9 MG, QD
     Route: 048
     Dates: start: 20030101
  3. EXELON [Suspect]
     Dosage: 3 MG, QD
     Route: 048
  4. LIPITOR [Suspect]
     Indication: HYPERCHOLESTEROLAEMIA
     Route: 048
     Dates: start: 20030101

REACTIONS (4)
  - ALDOLASE INCREASED [None]
  - BLOOD CREATINE PHOSPHOKINASE INCREASED [None]
  - MUSCLE TWITCHING [None]
  - MYOPATHY [None]
